FAERS Safety Report 13745741 (Version 1)
Quarter: 2017Q3

REPORT INFORMATION
  Report Type: Other
  Country: JP (occurrence: JP)
  Receive Date: 20170712
  Receipt Date: 20170712
  Transmission Date: 20171127
  Serious: Yes (Hospitalization)
  Sender: FDA-Public Use
  Company Number: JP-ACTELION-A-CH2017-156290

PATIENT
  Age: 50 Year
  Sex: Female

DRUGS (1)
  1. EPOPROSTENOL SODIUM. [Suspect]
     Active Substance: EPOPROSTENOL SODIUM
     Indication: PULMONARY HYPERTENSION
     Dosage: UNK
     Route: 042

REACTIONS (6)
  - Unhealthy diet [Unknown]
  - Polydipsia [Unknown]
  - Fluid overload [Unknown]
  - Cardiac failure [Unknown]
  - Disease risk factor [Unknown]
  - Nasopharyngitis [Unknown]
